FAERS Safety Report 7596879 (Version 6)
Quarter: 2012Q4

REPORT INFORMATION
  Report Type: 
  Country: JP (occurrence: JP)
  Receive Date: 20100920
  Receipt Date: 20120928
  Transmission Date: 20130627
  Serious: Yes (Hospitalization, Other)
  Sender: FDA-Public Use
  Company Number: JP-ROCHE-726941

PATIENT
  Age: 60 Year
  Sex: Female
  Weight: 34 kg

DRUGS (23)
  1. ACTEMRA [Suspect]
     Indication: RHEUMATOID ARTHRITIS
     Route: 041
     Dates: start: 20090826, end: 20090826
  2. ACTEMRA [Suspect]
     Route: 041
     Dates: start: 20090930, end: 20090930
  3. ACTEMRA [Suspect]
     Route: 041
     Dates: start: 20091028, end: 20091028
  4. ACTEMRA [Suspect]
     Route: 041
     Dates: start: 20091125, end: 20091125
  5. ACTEMRA [Suspect]
     Route: 041
     Dates: start: 20091224, end: 20091224
  6. ACTEMRA [Suspect]
     Route: 041
     Dates: start: 20100120, end: 20100120
  7. ACTEMRA [Suspect]
     Route: 041
     Dates: start: 20100216, end: 20100928
  8. RHEUMATREX [Suspect]
     Indication: RHEUMATOID ARTHRITIS
     Route: 048
  9. PREDNISOLONE [Suspect]
     Indication: RHEUMATOID ARTHRITIS
     Dosage: DOSE FORM: PERORAL AGENT
     Route: 048
  10. OMEPRAL [Suspect]
     Indication: PROPHYLAXIS
     Route: 048
  11. VOLTAREN [Suspect]
     Indication: PRODUCT USED FOR UNKNOWN INDICATION
     Dosage: VOLTAREN:LOTION(DICLOFENAC SODIUM)
     Route: 003
     Dates: start: 20081204, end: 20100907
  12. VOLTAREN [Suspect]
     Route: 003
  13. VOLTAREN SR [Suspect]
     Indication: RHEUMATOID ARTHRITIS
     Dosage: DOSE FORM: SUSTAINED RELEASE CAPSULE
     Route: 048
     Dates: start: 20090706, end: 20100907
  14. VOLTAREN SR [Suspect]
     Dosage: DOSE FORM: SUSTAINED RELEASE CAPSULE
     Route: 048
  15. OLMETEC [Concomitant]
     Indication: HYPERTENSION
     Route: 048
     Dates: start: 20080226, end: 20110415
  16. LIPITOR [Concomitant]
     Indication: LIPIDS ABNORMAL
     Route: 048
  17. BASEN [Concomitant]
     Indication: DIABETES MELLITUS
     Route: 048
  18. BAKTAR [Concomitant]
     Indication: PROPHYLAXIS
     Route: 048
  19. ALOSITOL [Concomitant]
     Indication: HYPERURICAEMIA
     Route: 048
  20. ACTONEL [Concomitant]
     Indication: OSTEOPOROSIS
     Route: 048
  21. METHYCOBAL [Concomitant]
     Route: 048
  22. POLARAMINE [Concomitant]
     Route: 048
  23. CYTOTEC [Concomitant]
     Indication: PROPHYLAXIS
     Route: 048

REACTIONS (3)
  - Peritonitis [Recovered/Resolved]
  - Large intestine perforation [Recovered/Resolved]
  - Large intestinal ulcer [Recovered/Resolved]
